FAERS Safety Report 15684659 (Version 2)
Quarter: 2019Q1

REPORT INFORMATION
  Report Type: Spontaneous
  Country: CA (occurrence: CA)
  Receive Date: 20181204
  Receipt Date: 20190121
  Transmission Date: 20190417
  Serious: Yes (Hospitalization, Other)
  Sender: FDA-Public Use
  Company Number: CA-TEVA-2018-CA-981625

PATIENT
  Age: 70 Year
  Sex: Female

DRUGS (14)
  1. PRAMIPEXOLE. [Suspect]
     Active Substance: PRAMIPEXOLE
     Dosage: 1.5 MILLIGRAM DAILY;
     Route: 065
  2. NABILONE [Suspect]
     Active Substance: NABILONE
     Indication: PARKINSON^S DISEASE
     Route: 048
  3. PRAMIPEXOLE. [Suspect]
     Active Substance: PRAMIPEXOLE
     Indication: PARKINSON^S DISEASE
     Dosage: 4.5 MILLIGRAM DAILY;
     Route: 065
  4. QUETIAPINE FUMARATE. [Suspect]
     Active Substance: QUETIAPINE FUMARATE
     Indication: PSYCHOTIC DISORDER
     Dosage: 12.5 MILLIGRAM DAILY;
     Route: 065
  5. AMANTADINE. [Suspect]
     Active Substance: AMANTADINE HYDROCHLORIDE
     Indication: PSYCHOTIC DISORDER
     Dosage: 300 MILLIGRAM DAILY;
     Route: 065
  6. CLOZAPINE. [Suspect]
     Active Substance: CLOZAPINE
     Indication: PARKINSON^S DISEASE
     Route: 065
  7. ENTACAPONE. [Suspect]
     Active Substance: ENTACAPONE
     Indication: PARKINSON^S DISEASE
     Dosage: 1000 MILLIGRAM DAILY;
     Route: 065
  8. NABILONE [Suspect]
     Active Substance: NABILONE
     Indication: PRODUCT USED FOR UNKNOWN INDICATION
     Route: 065
  9. AMANTADINE. [Suspect]
     Active Substance: AMANTADINE HYDROCHLORIDE
     Indication: PARKINSON^S DISEASE
  10. LEVODOPA-CARBIDOPA 100-25 [Suspect]
     Active Substance: CARBIDOPA\LEVODOPA
     Indication: PARKINSON^S DISEASE
     Dosage: 1000250 MILLIGRAM DAILY;
     Route: 065
  11. PRAMIPEXOLE. [Suspect]
     Active Substance: PRAMIPEXOLE
     Dosage: .75 MILLIGRAM DAILY;
     Route: 065
  12. QUETIAPINE FUMARATE. [Suspect]
     Active Substance: QUETIAPINE FUMARATE
     Indication: PRODUCT USED FOR UNKNOWN INDICATION
  13. CLOZAPINE. [Suspect]
     Active Substance: CLOZAPINE
     Indication: PSYCHOTIC DISORDER
     Dosage: 37.5 MILLIGRAM DAILY;
     Route: 065
  14. FLUDROCORTISONE [Suspect]
     Active Substance: FLUDROCORTISONE
     Indication: PSYCHOTIC DISORDER
     Dosage: .1 MILLIGRAM DAILY;
     Route: 065

REACTIONS (8)
  - Drug effect incomplete [Recovering/Resolving]
  - Therapeutic response shortened [Recovering/Resolving]
  - Acute psychosis [Recovering/Resolving]
  - Parkinson^s disease psychosis [Recovering/Resolving]
  - Psychotic disorder [Recovering/Resolving]
  - Dyskinesia [Recovering/Resolving]
  - Orthostatic hypotension [Recovering/Resolving]
  - Dystonia [Recovering/Resolving]
